FAERS Safety Report 20824012 (Version 1)
Quarter: 2022Q2

REPORT INFORMATION
  Report Type: Spontaneous
  Country: SI (occurrence: SI)
  Receive Date: 20220513
  Receipt Date: 20220513
  Transmission Date: 20220721
  Serious: Yes (Other)
  Sender: FDA-Public Use
  Company Number: SI-BoehringerIngelheim-2022-BI-169341

PATIENT
  Age: 58 Year
  Sex: Female

DRUGS (3)
  1. NINTEDANIB [Suspect]
     Active Substance: NINTEDANIB
     Indication: Product used for unknown indication
     Dosage: SIX CYCLES, THEN MAINTENANCE THERAPY
     Dates: start: 202012
  2. NINTEDANIB [Suspect]
     Active Substance: NINTEDANIB
  3. DOCETAXEL [Concomitant]
     Active Substance: DOCETAXEL
     Indication: Product used for unknown indication
     Dates: start: 202012

REACTIONS (8)
  - Seizure [Not Recovered/Not Resolved]
  - Metastases to central nervous system [Unknown]
  - Liver function test increased [Unknown]
  - Epistaxis [Unknown]
  - Diarrhoea [Unknown]
  - Vertigo [Not Recovered/Not Resolved]
  - Fatigue [Not Recovered/Not Resolved]
  - Hypertension [Unknown]

NARRATIVE: CASE EVENT DATE: 20201201
